FAERS Safety Report 5007735-0 (Version None)
Quarter: 2006Q2

REPORT INFORMATION
  Report Type: 
  Country: None (occurrence: None)
  Receive Date: 20060522
  Receipt Date: 20060511
  Transmission Date: 20061013
  Serious: Yes (Hospitalization)
  Sender: FDA-Public Use
  Company Number: PHBS2006IT07219

PATIENT
  Age: 70 Year
  Sex: Female

DRUGS (8)
  1. GLICONORM [Concomitant]
     Route: 065
  2. ACCURETIC [Concomitant]
     Route: 065
  3. ATENOLOL [Concomitant]
  4. TORVAST [Concomitant]
     Route: 048
  5. TICLID [Concomitant]
  6. RANIDIL [Concomitant]
     Route: 048
  7. TEGRETOL [Suspect]
     Dosage: 200 MG/DAY
     Route: 048
     Dates: start: 20051201, end: 20060411
  8. TEGRETOL [Suspect]
     Dosage: 400 MG/KG/DAY
     Route: 048
     Dates: start: 20051201, end: 20060411

REACTIONS (6)
  - ALANINE AMINOTRANSFERASE INCREASED [None]
  - ASPARTATE AMINOTRANSFERASE INCREASED [None]
  - BLOOD OSMOLARITY DECREASED [None]
  - BLOOD POTASSIUM DECREASED [None]
  - BLOOD SODIUM DECREASED [None]
  - HYPONATRAEMIA [None]
